FAERS Safety Report 8542583-6 (Version None)
Quarter: 2012Q3

REPORT INFORMATION
  Report Type: 
  Country: None (occurrence: None)
  Receive Date: 20120726
  Receipt Date: 20120718
  Transmission Date: 20120928
  Serious: Yes (Hospitalization)
  Sender: FDA-Public Use
  Company Number: KR-MSD-1207KOR008073

PATIENT

DRUGS (2)
  1. COSOPT [Suspect]
     Indication: GLAUCOMA
     Route: 047
  2. GINEXIN F [Concomitant]
     Dosage: UNK
     Dates: start: 20110801

REACTIONS (4)
  - DYSGEUSIA [None]
  - DECREASED APPETITE [None]
  - LOSS OF CONSCIOUSNESS [None]
  - CEREBRAL ISCHAEMIA [None]
